FAERS Safety Report 25320628 (Version 1)
Quarter: 2025Q2

REPORT INFORMATION
  Report Type: Spontaneous
  Country: US (occurrence: US)
  Receive Date: 20250515
  Receipt Date: 20250515
  Transmission Date: 20250716
  Serious: Yes (Other)
  Sender: SANOFI AVENTIS
  Company Number: US-SA-2025SA138033

PATIENT
  Age: 53 Year
  Sex: Female
  Weight: 58.96 kg

DRUGS (21)
  1. DUPIXENT [Suspect]
     Active Substance: DUPILUMAB
     Indication: Asthma
     Dosage: 300 MG, QOW
     Route: 058
  2. ALBUTEROL SULFATE [Concomitant]
     Active Substance: ALBUTEROL SULFATE
  3. ALBUTEROL SULFATE [Concomitant]
     Active Substance: ALBUTEROL SULFATE
  4. AMLODIPINE BESYLATE [Concomitant]
     Active Substance: AMLODIPINE BESYLATE
  5. ARMOUR THYROID [Concomitant]
     Active Substance: THYROID, PORCINE
  6. AZELASTINE HYDROCHLORIDE [Concomitant]
     Active Substance: AZELASTINE HYDROCHLORIDE
  7. CHLORHEXIDINE GLUCONATE [Concomitant]
     Active Substance: CHLORHEXIDINE GLUCONATE
  8. CUVITRU [Concomitant]
     Active Substance: HUMAN IMMUNOGLOBULIN G
  9. DOXEPIN HYDROCHLORIDE [Concomitant]
     Active Substance: DOXEPIN HYDROCHLORIDE
  10. MAGNESIUM OXIDE [Concomitant]
     Active Substance: MAGNESIUM OXIDE
  11. METFORMIN HYDROCHLORIDE [Concomitant]
     Active Substance: METFORMIN HYDROCHLORIDE
  12. METOPROLOL TARTRATE [Concomitant]
     Active Substance: METOPROLOL TARTRATE
  13. OZEMPIC [Concomitant]
     Active Substance: SEMAGLUTIDE
  14. VEOZAH [Concomitant]
     Active Substance: FEZOLINETANT
  15. VITAMIN D3 [Concomitant]
     Active Substance: CHOLECALCIFEROL
  16. ZILEUTON [Concomitant]
     Active Substance: ZILEUTON
  17. ACETAMINOPHEN [Concomitant]
     Active Substance: ACETAMINOPHEN
  18. DIPHENHYDRAMINE HYDROCHLORIDE [Concomitant]
     Active Substance: DIPHENHYDRAMINE HYDROCHLORIDE
  19. LIDOCAINE [Concomitant]
     Active Substance: LIDOCAINE
  20. EPINEPHRINE [Concomitant]
     Active Substance: EPINEPHRINE
  21. DOXYCYCLINE [Concomitant]
     Active Substance: DOXYCYCLINE

REACTIONS (3)
  - Atypical pneumonia [Unknown]
  - Nausea [Unknown]
  - Sinusitis [Unknown]
